FAERS Safety Report 8898713 (Version 4)
Quarter: 2012Q4

REPORT INFORMATION
  Report Type: Report from Study
  Country: US (occurrence: US)
  Receive Date: 20121109
  Receipt Date: 20121214
  Transmission Date: 20130627
  Serious: Yes (Hospitalization, Other)
  Sender: FDA-Public Use
  Company Number: US-ABBOTT-12P-163-1004248-00

PATIENT
  Age: 52 None
  Sex: Female
  Weight: 59.93 kg

DRUGS (13)
  1. LUPRON DEPOT [Suspect]
     Indication: UTERINE LEIOMYOMA
     Dates: start: 20121012
  2. LUPRON DEPOT [Suspect]
     Indication: PELVIC PAIN
  3. LORAZEPAM [Concomitant]
     Indication: PRODUCT USED FOR UNKNOWN INDICATION
  4. COUMADIN SODIUM [Concomitant]
     Indication: MITRAL VALVE REPLACEMENT
  5. LOVENOX [Concomitant]
     Indication: PRODUCT USED FOR UNKNOWN INDICATION
  6. TIMOLOL [Concomitant]
     Indication: PRODUCT USED FOR UNKNOWN INDICATION
  7. ENDOCET [Concomitant]
     Indication: PRODUCT USED FOR UNKNOWN INDICATION
  8. VITAMIN D [Concomitant]
     Indication: PRODUCT USED FOR UNKNOWN INDICATION
  9. PROBIOTIC [Concomitant]
     Indication: PRODUCT USED FOR UNKNOWN INDICATION
  10. HYDROXYZINE [Concomitant]
     Indication: ANXIETY
  11. TEMAZEPAM [Concomitant]
     Indication: POOR QUALITY SLEEP
  12. PERCOCET [Concomitant]
     Indication: PAIN
  13. ATENOLOL [Concomitant]
     Indication: HYPERTENSION
     Dates: end: 201210

REACTIONS (12)
  - Fasciotomy [Unknown]
  - Hyperhidrosis [Not Recovered/Not Resolved]
  - Compartment syndrome [Recovering/Resolving]
  - Muscle rupture [Recovering/Resolving]
  - Muscle oedema [Recovering/Resolving]
  - Oedema [Recovering/Resolving]
  - Myalgia [Recovering/Resolving]
  - Myalgia [Recovering/Resolving]
  - Hot flush [Recovering/Resolving]
  - Hyperhidrosis [Recovering/Resolving]
  - International normalised ratio increased [Recovering/Resolving]
  - Muscle haemorrhage [Recovered/Resolved]
